FAERS Safety Report 21720205 (Version 4)
Quarter: 2023Q4

REPORT INFORMATION
  Report Type: Report from Study
  Country: CA (occurrence: CA)
  Receive Date: 20221213
  Receipt Date: 20231109
  Transmission Date: 20240110
  Serious: Yes (Other)
  Sender: FDA-Public Use
  Company Number: CA-JNJFOC-20210315798

PATIENT
  Age: 10 Year
  Sex: Female
  Weight: 40 kg

DRUGS (8)
  1. REMICADE [Suspect]
     Active Substance: INFLIXIMAB
     Indication: Juvenile idiopathic arthritis
     Dosage: RECEIVED INFUSION ON 28-NOV-2017.?THE PATIENT RECEIVED MONTHLY REMICADE INFUSIONS BETWEEN NOV-2017 A
     Route: 042
     Dates: start: 20111128
  2. REMICADE [Suspect]
     Active Substance: INFLIXIMAB
     Indication: Uveitis
     Route: 042
  3. REMICADE [Suspect]
     Active Substance: INFLIXIMAB
     Indication: Rheumatoid arthritis
     Route: 042
  4. REMICADE [Suspect]
     Active Substance: INFLIXIMAB
     Route: 042
  5. REMICADE [Suspect]
     Active Substance: INFLIXIMAB
     Route: 042
  6. REMICADE [Suspect]
     Active Substance: INFLIXIMAB
     Dosage: 10 MG/KG
     Route: 042
  7. REMICADE [Suspect]
     Active Substance: INFLIXIMAB
     Dosage: REMICADE RESTART REQUESTED 10 MG/KG EVERY 2 WEEK
     Route: 042
     Dates: end: 202305
  8. TOCILIZUMAB [Concomitant]
     Active Substance: TOCILIZUMAB
     Indication: Uveitis
     Route: 058

REACTIONS (4)
  - Juvenile idiopathic arthritis [Unknown]
  - Uveitis [Unknown]
  - COVID-19 [Unknown]
  - Therapeutic product effect decreased [Unknown]

NARRATIVE: CASE EVENT DATE: 20220208
